FAERS Safety Report 7582759-8 (Version None)
Quarter: 2011Q2

REPORT INFORMATION
  Report Type: 
  Country: None (occurrence: None)
  Receive Date: 20110630
  Receipt Date: 20110627
  Transmission Date: 20111010
  Serious: Yes (Hospitalization)
  Sender: FDA-Public Use
  Company Number: FR-PFIZER INC-2011141931

PATIENT
  Age: 22 Year
  Sex: Male
  Weight: 40 kg

DRUGS (5)
  1. CLARITHROMYCIN [Suspect]
     Indication: BRONCHOPNEUMONIA
     Dosage: 500 MG, 2X/DAY
     Route: 048
     Dates: start: 20110520
  2. AMIKACIN [Concomitant]
     Dosage: UNK
     Route: 048
     Dates: start: 20110520
  3. CEFOXITIN [Suspect]
     Indication: BRONCHOPNEUMONIA
     Dosage: 3 G, 3X/DAY
     Route: 042
     Dates: start: 20110520, end: 20110601
  4. ZYVOX [Suspect]
     Indication: BRONCHOPNEUMONIA
     Dosage: 600 MG, 2X/DAY
     Route: 048
     Dates: start: 20110520, end: 20110528
  5. ETHAMBUTOL [Concomitant]
     Indication: BRONCHOPNEUMONIA
     Dosage: UNK
     Route: 048
     Dates: start: 20110520

REACTIONS (2)
  - HAEMATURIA [None]
  - THROMBOCYTOPENIA [None]
